FAERS Safety Report 4737944-7 (Version None)
Quarter: 2005Q3

REPORT INFORMATION
  Report Type: 
  Country: None (occurrence: None)
  Receive Date: 20050805
  Receipt Date: 20050805
  Transmission Date: 20060218
  Serious: No
  Sender: FDA-Public Use
  Company Number: None

PATIENT
  Age: 66 Year
  Sex: Female
  Weight: 49.8957 kg

DRUGS (1)
  1. CARAC [Suspect]
     Indication: PRECANCEROUS SKIN LESION
     Dosage: APPLIED ONCE AT NIGHT
     Dates: start: 20050221, end: 20050313

REACTIONS (2)
  - APPLICATION SITE ERYTHEMA [None]
  - LACRIMATION INCREASED [None]
